FAERS Safety Report 5240263-6 (Version None)
Quarter: 2007Q1

REPORT INFORMATION
  Report Type: 
  Country: None (occurrence: None)
  Receive Date: 20070219
  Receipt Date: 20070208
  Transmission Date: 20070707
  Serious: Yes (Other)
  Sender: FDA-Public Use
  Company Number: US-ELI_LILLY_AND_COMPANY-US200702002205

PATIENT
  Age: 33 Year
  Sex: Female

DRUGS (1)
  1. ZYPREXA [Suspect]
     Indication: MANIA
     Dosage: 10 MG, UNK
     Dates: start: 20060901, end: 20060901

REACTIONS (1)
  - VON WILLEBRAND'S DISEASE [None]
